FAERS Safety Report 5174438-1 (Version None)
Quarter: 2006Q4

REPORT INFORMATION
  Report Type: 
  Country: None (occurrence: None)
  Receive Date: 20061214
  Receipt Date: 20061211
  Transmission Date: 20070319
  Serious: Yes (Hospitalization, Other)
  Sender: FDA-Public Use
  Company Number: US-PURDUE-USA_2006_0025915

PATIENT
  Age: 40 Year
  Sex: Male
  Weight: 112 kg

DRUGS (8)
  1. OXYCODONE HYDROCHLORIDE [Suspect]
     Indication: NECK PAIN
     Dosage: 120 MG, SEE TEXT
     Route: 048
     Dates: start: 20051201, end: 20060201
  2. OXYCODONE HYDROCHLORIDE [Suspect]
     Dosage: 80 MG, BID
     Route: 048
     Dates: start: 20060201, end: 20060401
  3. LOPRESSOR [Concomitant]
     Indication: HYPERTENSION
     Dosage: 100 MG, BID
     Dates: start: 20051201
  4. LASIX [Concomitant]
     Indication: FLUID RETENTION
     Dosage: 40 MG, PRN
     Dates: start: 20051201
  5. LISINOPRIL W/HYDROCHLOROTHIAZIDE [Concomitant]
     Dosage: UNK MG, SEE TEXT
  6. METOPROLOL SUCCINATE [Concomitant]
     Indication: HYPERTENSION
     Dosage: 50 MG, BID
     Dates: start: 20051201
  7. NEURONTIN [Concomitant]
     Indication: PAIN
     Dosage: 800 MG, QID
     Dates: start: 20051201
  8. ACETYLSALICYLIC ACID SRT [Concomitant]
     Indication: DRUG USE FOR UNKNOWN INDICATION
     Dosage: UNK, UNK
     Dates: start: 20051201

REACTIONS (5)
  - ABDOMINAL PAIN [None]
  - CONSTIPATION [None]
  - FLUID RETENTION [None]
  - PERICARDIAL EFFUSION [None]
  - PLEURAL EFFUSION [None]
